FAERS Safety Report 11090879 (Version 1)
Quarter: 2015Q2

REPORT INFORMATION
  Report Type: Spontaneous
  Country: US (occurrence: US)
  Receive Date: 20150505
  Receipt Date: 20150505
  Transmission Date: 20150821
  Serious: Yes (Other)
  Sender: FDA-Public Use
  Company Number: US-ASTRAZENECA-2015SE41127

PATIENT
  Age: 88 Year
  Sex: Female
  Weight: 52.2 kg

DRUGS (5)
  1. ATENOLOL. [Suspect]
     Active Substance: ATENOLOL
     Indication: HYPERTENSION
     Route: 048
  2. SEROQUEL [Suspect]
     Active Substance: QUETIAPINE FUMARATE
     Indication: SLEEP DISORDER
     Route: 048
  3. SEROQUEL [Suspect]
     Active Substance: QUETIAPINE FUMARATE
     Indication: SLEEP DISORDER
     Dosage: EVERY OTHER NIGHT
     Route: 048
  4. OMEPRAZOLE. [Suspect]
     Active Substance: OMEPRAZOLE
     Indication: ACIDOSIS
     Route: 048
  5. ATORVASTATIN [Concomitant]
     Active Substance: ATORVASTATIN
     Indication: BLOOD TRIGLYCERIDES

REACTIONS (16)
  - Laryngitis [Unknown]
  - Faeces discoloured [Unknown]
  - Dysphagia [Not Recovered/Not Resolved]
  - Insomnia [Unknown]
  - Cystitis [Unknown]
  - Drug effect incomplete [Unknown]
  - Pancreatic cyst [Unknown]
  - Micturition urgency [Unknown]
  - Somnolence [Unknown]
  - Off label use [Unknown]
  - Kidney infection [Unknown]
  - Hyperchlorhydria [Unknown]
  - Transient ischaemic attack [Unknown]
  - Hypertension [Unknown]
  - Glaucoma [Unknown]
  - Dementia [Unknown]

NARRATIVE: CASE EVENT DATE: 2012
